FAERS Safety Report 16664978 (Version 1)
Quarter: 2019Q3

REPORT INFORMATION
  Report Type: Spontaneous
  Country: ES (occurrence: ES)
  Receive Date: 20190803
  Receipt Date: 20190803
  Transmission Date: 20191004
  Serious: Yes (Other)
  Sender: FDA-Public Use
  Company Number: ES-AUROBINDO-AUR-APL-2019-044958

PATIENT

DRUGS (3)
  1. CARDYL [Concomitant]
     Active Substance: ATORVASTATIN CALCIUM
     Indication: HYPERCHOLESTEROLAEMIA
     Dosage: 1 DOSAGE FORM, ONCE A DAY (EVERY 24 HOURS)
     Route: 048
     Dates: start: 20170526
  2. MICARDIS [Concomitant]
     Active Substance: TELMISARTAN
     Indication: HYPERTENSION
     Dosage: 1 DOSAGE FORM, ONCE A DAY (EVERY 24 HOURS)
     Route: 048
     Dates: start: 20170526
  3. TAMSULOSIN [Suspect]
     Active Substance: TAMSULOSIN
     Indication: BENIGN PROSTATIC HYPERPLASIA
     Dosage: 0.4 MILLIGRAM, UNKNOWN FREQ.
     Route: 048
     Dates: start: 20170603, end: 20170915

REACTIONS (9)
  - Post micturition dribble [Recovered/Resolved]
  - Ejaculation failure [Unknown]
  - Urine flow decreased [Recovered/Resolved]
  - Somnolence [Unknown]
  - Drug ineffective [Unknown]
  - Prostatism [Unknown]
  - Pollakiuria [Recovered/Resolved]
  - Libido decreased [Recovering/Resolving]
  - Nocturia [Unknown]
